FAERS Safety Report 7093996-3 (Version None)
Quarter: 2010Q4

REPORT INFORMATION
  Report Type: 
  Country: None (occurrence: None)
  Receive Date: 20101101
  Receipt Date: 20101026
  Transmission Date: 20110411
  Serious: Yes (Death, Other)
  Sender: FDA-Public Use
  Company Number: 011632

PATIENT
  Sex: Female

DRUGS (3)
  1. BUSULFEX [Suspect]
     Dosage: 16 MG/KG
  2. CYCLOPHOSPHAMIDE [Suspect]
     Dosage: 200 MG/KG
  3. DEFIBROTIDE(DEFIBROTIDE) [Suspect]
     Dosage: 10 MG/KG

REACTIONS (2)
  - GEOTRICHUM INFECTION [None]
  - VENOOCCLUSIVE LIVER DISEASE [None]
